FAERS Safety Report 8175172-6 (Version None)
Quarter: 2012Q1

REPORT INFORMATION
  Report Type: 
  Country: None (occurrence: None)
  Receive Date: 20120229
  Receipt Date: 20120227
  Transmission Date: 20120608
  Serious: Yes (Death, Other)
  Sender: FDA-Public Use
  Company Number: PHHY2012BD016838

PATIENT
  Age: 60 Year
  Sex: Male

DRUGS (1)
  1. EXELON [Suspect]

REACTIONS (3)
  - SKIN ULCER [None]
  - DIABETES MELLITUS [None]
  - DEATH [None]
